FAERS Safety Report 11966155 (Version 4)
Quarter: 2016Q2

REPORT INFORMATION
  Report Type: Spontaneous
  Country: US (occurrence: US)
  Receive Date: 20160127
  Receipt Date: 20160413
  Transmission Date: 20160815
  Serious: No
  Sender: FDA-Public Use
  Company Number: US-PFIZER INC-2016032108

PATIENT
  Age: 61 Year
  Sex: Male
  Weight: 109 kg

DRUGS (7)
  1. CELEXA [Concomitant]
     Active Substance: CITALOPRAM HYDROBROMIDE
     Dosage: 20 MG, 1X/DAY TABLET
  2. SINGULAIR [Concomitant]
     Active Substance: MONTELUKAST SODIUM
     Indication: ASTHMA
     Dosage: 10 MG, 1X/DAY
     Route: 048
  3. ANORO ELLIPTA [Concomitant]
     Active Substance: UMECLIDINIUM BROMIDE\VILANTEROL TRIFENATATE
     Indication: CHRONIC OBSTRUCTIVE PULMONARY DISEASE
     Dosage: 1 DF, 1X/DAY; 62.5MCG/25MCG ONE INHALATION ONCE A DAY
     Route: 055
     Dates: start: 2015
  4. VFEND [Suspect]
     Active Substance: VORICONAZOLE
     Indication: ASPERGILLUS INFECTION
     Dosage: 200 MG, 2X/DAY
     Route: 048
     Dates: start: 2015
  5. AZITHROMYCIN ANHYDROUS. [Concomitant]
     Active Substance: AZITHROMYCIN ANHYDROUS
     Indication: LUNG INFECTION
     Dosage: 500 MG, UNK
     Route: 048
  6. VFEND [Suspect]
     Active Substance: VORICONAZOLE
     Dosage: UNK (200MG IN THE MORNING AND 100MG IN THE EVENING)
  7. XANAX [Concomitant]
     Active Substance: ALPRAZOLAM
     Dosage: 0.5 MG, AS NEEDED EVERY 4 HOURS BY MOUTH; HE TAKES TWO OR THREE TABLETS A DAY
     Route: 048

REACTIONS (8)
  - Dyspnoea [Not Recovered/Not Resolved]
  - Paraesthesia oral [Unknown]
  - Oxygen saturation decreased [Unknown]
  - Feeling hot [Unknown]
  - Dyspepsia [Unknown]
  - Lip dry [Unknown]
  - Blood creatinine increased [Recovered/Resolved]
  - Condition aggravated [Not Recovered/Not Resolved]

NARRATIVE: CASE EVENT DATE: 2015
